FAERS Safety Report 25853700 (Version 3)
Quarter: 2025Q4

REPORT INFORMATION
  Report Type: Spontaneous
  Country: KR (occurrence: KR)
  Receive Date: 20250926
  Receipt Date: 20251031
  Transmission Date: 20260119
  Serious: Yes (Hospitalization)
  Sender: ELI LILLY AND COMPANY
  Company Number: KR-ELI_LILLY_AND_COMPANY-KR202509017180

PATIENT
  Sex: Male

DRUGS (116)
  1. JAYPIRCA [Suspect]
     Active Substance: PIRTOBRUTINIB
     Indication: Mantle cell lymphoma
     Dosage: 200 MG, DAILY (2 TABLETS OF 100MG, DAILY)
     Route: 048
     Dates: start: 20250908
  2. BC CODEINE PHOSPHATE [Concomitant]
     Indication: Product used for unknown indication
     Dosage: UNK UNK, BID
     Dates: start: 20250729, end: 20250731
  3. BC CODEINE PHOSPHATE [Concomitant]
     Dosage: UNK UNK, QID
     Dates: start: 20250801, end: 20250806
  4. BC CODEINE PHOSPHATE [Concomitant]
     Dosage: UNK UNK, EVERY 3 HRS
     Dates: start: 20250807, end: 20251002
  5. BC CODEINE PHOSPHATE [Concomitant]
     Dosage: UNK, EVERY 4 HRS
     Dates: start: 20250903, end: 20250903
  6. BORYUNG ACETYLCYSTEINE [Concomitant]
     Indication: Product used for unknown indication
     Dosage: UNK UNK, QID
     Dates: start: 20250730, end: 20250930
  7. BORYUNG ACETYLCYSTEINE [Concomitant]
     Dosage: UNK UNK, DAILY
     Dates: start: 20250901, end: 20250903
  8. BORYUNG ACETYLCYSTEINE [Concomitant]
     Dosage: UNK UNK, TID
     Dates: start: 20250914, end: 20250925
  9. BORYUNG ACETYLCYSTEINE [Concomitant]
     Dosage: UNK, BID
     Dates: start: 20251001, end: 20251001
  10. COUGH SYRUP [AMMONIUM CHLORIDE;CHLORPHENAMINE [Concomitant]
     Indication: Product used for unknown indication
     Dosage: UNK UNK, TID
     Dates: start: 20250801, end: 20251002
  11. COUGH SYRUP [AMMONIUM CHLORIDE;CHLORPHENAMINE [Concomitant]
     Dosage: UNK UNK, SINGLE
     Dates: start: 20250802, end: 20250802
  12. COUGH SYRUP [AMMONIUM CHLORIDE;CHLORPHENAMINE [Concomitant]
     Dosage: UNK, BID
     Dates: start: 20250903, end: 20250908
  13. ENCOVER [Concomitant]
     Indication: Product used for unknown indication
     Dosage: UNK UNK, BID
     Dates: start: 20250729, end: 20250918
  14. ENCOVER [Concomitant]
     Dosage: UNK UNK, TID
     Dates: start: 20250730, end: 20250806
  15. ENCOVER [Concomitant]
     Dosage: UNK UNK, EVERY 4 HRS
     Dates: start: 20250802, end: 20250917
  16. ENCOVER [Concomitant]
     Dosage: UNK UNK, DAILY
     Dates: start: 20250807, end: 20250908
  17. MEGESTROL ACETATE [Concomitant]
     Active Substance: MEGESTROL ACETATE
     Indication: Product used for unknown indication
     Dosage: UNK UNK, DAILY
     Dates: start: 20250729, end: 20251002
  18. QUETIAPINE FUMARATE [Concomitant]
     Active Substance: QUETIAPINE FUMARATE
     Indication: Product used for unknown indication
     Dosage: 25 MG, DAILY
     Dates: start: 20250729, end: 20251002
  19. SAMNAM LOPERAMIDE [Concomitant]
     Indication: Product used for unknown indication
     Dosage: UNK UNK, QID
     Dates: start: 20250827, end: 20250926
  20. SAMNAM LOPERAMIDE [Concomitant]
     Dosage: UNK UNK, DAILY
     Dates: start: 20250917, end: 20250926
  21. SAMNAM LOPERAMIDE [Concomitant]
     Dosage: UNK, EVERY 4 HRS
     Dates: start: 20250830, end: 20251002
  22. SAMNAM LOPERAMIDE [Concomitant]
     Dosage: UNK, TID
     Dates: start: 20250902, end: 20251002
  23. SYNATURA [Concomitant]
     Indication: Product used for unknown indication
     Dosage: UNK UNK, TID
     Dates: start: 20250807, end: 20251002
  24. SYNATURA [Concomitant]
     Dosage: UNK UNK, BID
     Dates: start: 20250903, end: 20250903
  25. SYNATURA [Concomitant]
     Dosage: UNK
  26. PHENYLEPHRINE HYDROCHLORIDE\TROPICAMIDE [Concomitant]
     Active Substance: PHENYLEPHRINE HYDROCHLORIDE\TROPICAMIDE
     Indication: Product used for unknown indication
     Dosage: UNK UNK, DAILY
     Dates: start: 20250821, end: 20250912
  27. URICAINE [Concomitant]
     Indication: Product used for unknown indication
     Dosage: UNK UNK, DAILY
     Dates: start: 20250731, end: 20250918
  28. URICAINE [Concomitant]
     Dosage: UNK UNK, BID
     Dates: start: 20250803, end: 20250824
  29. VFEND [Concomitant]
     Active Substance: VORICONAZOLE
     Indication: Product used for unknown indication
     Dosage: 200 MG, BID
     Dates: start: 20250729, end: 20250908
  30. VFEND [Concomitant]
     Active Substance: VORICONAZOLE
     Dosage: 200 MG, OTHER (0.5)
     Dates: start: 20250804, end: 20250909
  31. VFEND [Concomitant]
     Active Substance: VORICONAZOLE
     Dosage: 200 MG, OTHER (0.85)
     Dates: start: 20250805, end: 20250910
  32. VFEND [Concomitant]
     Active Substance: VORICONAZOLE
     Dosage: 200 MG, OTHER (1.7)
     Dates: start: 20250805, end: 20250912
  33. VFEND [Concomitant]
     Active Substance: VORICONAZOLE
     Dosage: 200 MG, DAILY
     Dates: start: 20250812, end: 20250906
  34. VFEND [Concomitant]
     Active Substance: VORICONAZOLE
     Dosage: 200 MG, OTHER (0.9)
     Dates: start: 20250813, end: 20250813
  35. VFEND [Concomitant]
     Active Substance: VORICONAZOLE
     Dosage: 200 MG, OTHER (1.8)
     Dates: start: 20250813, end: 20250819
  36. VFEND [Concomitant]
     Active Substance: VORICONAZOLE
     Dosage: 200 MG, OTHER (0.75)
     Dates: start: 20250819, end: 20250819
  37. VFEND [Concomitant]
     Active Substance: VORICONAZOLE
     Dosage: 200 MG, OTHER (0.25)
     Dates: start: 20250822, end: 20250822
  38. VFEND [Concomitant]
     Active Substance: VORICONAZOLE
     Dosage: 200 MG, OTHER (0.7)
     Dates: start: 20250823, end: 20250823
  39. VFEND [Concomitant]
     Active Substance: VORICONAZOLE
     Dosage: 200 MG, OTHER (1.4)
     Dates: start: 20250823, end: 20250826
  40. VFEND [Concomitant]
     Active Substance: VORICONAZOLE
     Dosage: 200 MG, OTHER (0.8)
     Dates: start: 20250827, end: 20250827
  41. VFEND [Concomitant]
     Active Substance: VORICONAZOLE
     Dosage: 200 MG, OTHER (1.6)
     Dates: start: 20250827, end: 20250905
  42. VFEND [Concomitant]
     Active Substance: VORICONAZOLE
     Dosage: 200 MG, OTHER (1.25)
     Dates: start: 20250905, end: 20250905
  43. VFEND [Concomitant]
     Active Substance: VORICONAZOLE
     Dosage: 200 MG, SINGLE
     Dates: start: 20250930, end: 20250930
  44. VFEND [Concomitant]
     Active Substance: VORICONAZOLE
     Dosage: 200 MG, QID
     Dates: start: 20250926, end: 20251001
  45. VFEND [Concomitant]
     Active Substance: VORICONAZOLE
     Dosage: 200 MG, BID
     Dates: start: 20250927, end: 20251002
  46. VFEND [Concomitant]
     Active Substance: VORICONAZOLE
     Dosage: 200 MG, OTHER (2.5)
     Dates: start: 20251002, end: 20251002
  47. VIGAMOX [Concomitant]
     Active Substance: MOXIFLOXACIN HYDROCHLORIDE
     Indication: Product used for unknown indication
     Dosage: UNK UNK, DAILY
     Dates: start: 20250731, end: 20251002
  48. XANAX [Concomitant]
     Active Substance: ALPRAZOLAM
     Indication: Product used for unknown indication
     Dosage: 0.25 MG, DAILY
     Dates: start: 20250729, end: 20251002
  49. ALLOPURINOL [Concomitant]
     Active Substance: ALLOPURINOL
     Indication: Product used for unknown indication
     Dosage: UNK UNK, BID
     Dates: start: 20250825, end: 20250914
  50. ALLOPURINOL [Concomitant]
     Active Substance: ALLOPURINOL
     Dosage: UNK UNK, SINGLE
     Dates: start: 20250825, end: 20250915
  51. ESROBAN [Concomitant]
     Indication: Product used for unknown indication
     Dosage: UNK UNK, DAILY
     Dates: start: 20250909, end: 20251002
  52. ESROBAN [Concomitant]
     Dosage: UNK UNK, BID
     Dates: start: 20250926, end: 20250926
  53. LACTULOSE [Concomitant]
     Active Substance: LACTULOSE
     Indication: Product used for unknown indication
     Dosage: UNK UNK, BID
     Dates: start: 20250912, end: 20250912
  54. CRESEMBA [Concomitant]
     Active Substance: ISAVUCONAZONIUM SULFATE
     Indication: Product used for unknown indication
     Dosage: 100 MG, EVERY 4 HRS
     Dates: start: 20250912, end: 20250913
  55. CRESEMBA [Concomitant]
     Active Substance: ISAVUCONAZONIUM SULFATE
     Dosage: 100 MG, BID
     Dates: start: 20250914, end: 20250924
  56. CACEPIN [Concomitant]
     Indication: Product used for unknown indication
     Dosage: 12.5 MG, DAILY
     Dates: start: 20250917, end: 20251002
  57. PREDNISOLONE [Concomitant]
     Active Substance: PREDNISOLONE
     Indication: Product used for unknown indication
     Dosage: UNK UNK, EVERY 4 HRS
     Dates: start: 20250919, end: 20250924
  58. PREDNISOLONE [Concomitant]
     Active Substance: PREDNISOLONE
     Dosage: UNK UNK, BID
     Dates: start: 20250920, end: 20251002
  59. PREDNISOLONE [Concomitant]
     Active Substance: PREDNISOLONE
     Dosage: UNK UNK, QID
     Dates: start: 20250925, end: 20250930
  60. PREDNISOLONE [Concomitant]
     Active Substance: PREDNISOLONE
     Dosage: UNK UNK, TID
     Dates: start: 20250926, end: 20250928
  61. KETOTOP EL [Concomitant]
     Indication: Product used for unknown indication
     Dosage: UNK UNK, DAILY
     Dates: start: 20250922, end: 20250922
  62. GODEX [ADENINE HYDROCHLORIDE;BIFENDATE;CARNIT [Concomitant]
     Indication: Product used for unknown indication
     Dosage: UNK UNK, TID
     Dates: start: 20250923, end: 20250928
  63. GODEX [ADENINE HYDROCHLORIDE;BIFENDATE;CARNIT [Concomitant]
     Dosage: UNK UNK, DAILY
     Dates: start: 20250929, end: 20250929
  64. URSODIOL [Concomitant]
     Active Substance: URSODIOL
     Indication: Product used for unknown indication
     Dosage: 200 MG, TID
     Dates: start: 20250923, end: 20250928
  65. URSODIOL [Concomitant]
     Active Substance: URSODIOL
     Dosage: 200 MG, DAILY
     Dates: start: 20250929, end: 20250929
  66. TYLENOL [Concomitant]
     Active Substance: ACETAMINOPHEN
     Indication: Product used for unknown indication
     Dosage: UNK UNK, BID
     Dates: start: 20250924, end: 20251001
  67. CEFEPIME HYDROCHLORIDE [Concomitant]
     Active Substance: CEFEPIME HYDROCHLORIDE
     Indication: Product used for unknown indication
     Dosage: 1 G, EVERY 4 HRS
     Dates: start: 20250817, end: 20250901
  68. CEFEPIME HYDROCHLORIDE [Concomitant]
     Active Substance: CEFEPIME HYDROCHLORIDE
     Dosage: 1 G, TID
     Dates: start: 20250902, end: 20251001
  69. CEFEPIME HYDROCHLORIDE [Concomitant]
     Active Substance: CEFEPIME HYDROCHLORIDE
     Dosage: 1 G, DAILY
     Dates: start: 20250909, end: 20251002
  70. TAZOPERAN [Concomitant]
     Indication: Product used for unknown indication
     Dosage: 4.5 G, TID
     Dates: start: 20250730, end: 20250928
  71. TAZOPERAN [Concomitant]
     Dosage: 4.5 G, QID
     Dates: start: 20250731, end: 20250812
  72. TAZOPERAN [Concomitant]
     Dosage: 4.5 G, BID
     Dates: start: 20250912, end: 20250929
  73. BENZYDAMINE HYDROCHLORIDE [Concomitant]
     Active Substance: BENZYDAMINE HYDROCHLORIDE
     Indication: Product used for unknown indication
     Dosage: UNK UNK, SINGLE
     Dates: start: 20250803, end: 20250803
  74. BENZYDAMINE HYDROCHLORIDE [Concomitant]
     Active Substance: BENZYDAMINE HYDROCHLORIDE
     Dosage: UNK UNK, BID
     Dates: start: 20251002, end: 20251002
  75. MAGNESIUM HYDROXIDE [Concomitant]
     Active Substance: MAGNESIUM HYDROXIDE
     Indication: Product used for unknown indication
     Dosage: UNK UNK, BID
     Dates: start: 20250907, end: 20250908
  76. INNO.N 0.9% SODIUM CHLORIDE [Concomitant]
     Indication: Product used for unknown indication
     Dosage: UNK UNK, DAILY
     Dates: start: 20250729, end: 20250904
  77. INNO.N 0.9% SODIUM CHLORIDE [Concomitant]
     Dosage: UNK UNK, TID
     Dates: start: 20250730, end: 20250928
  78. INNO.N 0.9% SODIUM CHLORIDE [Concomitant]
     Dosage: UNK UNK, QID
     Dates: start: 20250731, end: 20250812
  79. INNO.N 0.9% SODIUM CHLORIDE [Concomitant]
     Dosage: UNK UNK, DAILY
     Dates: start: 20250822, end: 20250916
  80. INNO.N 0.9% SODIUM CHLORIDE [Concomitant]
     Dosage: UNK UNK, DAILY
     Dates: start: 20250826, end: 20251002
  81. INNO.N 0.9% SODIUM CHLORIDE [Concomitant]
     Dosage: UNK UNK, DAILY
     Dates: start: 20250828, end: 20250828
  82. INNO.N 0.9% SODIUM CHLORIDE [Concomitant]
     Dosage: UNK UNK, BID
     Dates: start: 20250912, end: 20250929
  83. INNO.N 0.9% SODIUM CHLORIDE [Concomitant]
     Dosage: UNK UNK, TID
     Dates: start: 20250930, end: 20251001
  84. INNO.N 0.9% SODIUM CHLORIDE [Concomitant]
     Dosage: UNK UNK, DAILY
     Dates: start: 20250804, end: 20250804
  85. SMOFLIPID [Concomitant]
     Active Substance: FISH OIL\MEDIUM-CHAIN TRIGLYCERIDES\OLIVE OIL\SOYBEAN OIL
     Indication: Product used for unknown indication
     Dosage: UNK UNK, DAILY
     Dates: start: 20250729, end: 20250914
  86. TYLICOL [Concomitant]
     Indication: Product used for unknown indication
     Dosage: UNK UNK, DAILY
     Dates: start: 20250729, end: 20250919
  87. HUONS HEPARIN SODIUM [Concomitant]
     Indication: Product used for unknown indication
     Dosage: 100 INTERNATIONAL UNIT, DAILY
     Dates: start: 20250729, end: 20251001
  88. HUONS HEPARIN SODIUM [Concomitant]
     Dosage: 100 INTERNATIONAL UNIT, OTHER (5)
     Dates: start: 20251001, end: 20251001
  89. SODIUM CHLORIDE [Concomitant]
     Active Substance: SODIUM CHLORIDE
     Indication: Product used for unknown indication
     Dosage: UNK UNK, DAILY
     Dates: start: 20250730, end: 20250912
  90. SODIUM CHLORIDE [Concomitant]
     Active Substance: SODIUM CHLORIDE
     Dosage: UNK UNK, DAILY
     Dates: start: 20250804, end: 20250930
  91. SODIUM CHLORIDE [Concomitant]
     Active Substance: SODIUM CHLORIDE
     Dosage: UNK UNK, TID
     Dates: start: 20250817, end: 20250908
  92. SODIUM CHLORIDE [Concomitant]
     Active Substance: SODIUM CHLORIDE
     Dosage: UNK UNK, DAILY
     Dates: start: 20250822, end: 20250911
  93. SODIUM CHLORIDE [Concomitant]
     Active Substance: SODIUM CHLORIDE
     Dosage: UNK UNK, DAILY
     Dates: start: 20250901, end: 20250908
  94. SODIUM CHLORIDE [Concomitant]
     Active Substance: SODIUM CHLORIDE
     Dosage: UNK UNK, BID
     Dates: start: 20251001, end: 20251001
  95. SODIUM CHLORIDE [Concomitant]
     Active Substance: SODIUM CHLORIDE
     Dosage: UNK UNK, DAILY
     Dates: start: 20251002, end: 20251002
  96. SODIUM CHLORIDE [Concomitant]
     Active Substance: SODIUM CHLORIDE
     Dosage: UNK UNK, DAILY
     Dates: start: 20250824, end: 20250824
  97. ACETYLCYSTEINE [Concomitant]
     Active Substance: ACETYLCYSTEINE
     Indication: Product used for unknown indication
     Dosage: UNK UNK, DAILY
     Dates: start: 20250730, end: 20251001
  98. ACETYLCYSTEINE [Concomitant]
     Active Substance: ACETYLCYSTEINE
     Dosage: UNK UNK, EVERY 6 HRS
     Dates: start: 20251002, end: 20251002
  99. NEUPOGEN [Concomitant]
     Active Substance: FILGRASTIM
     Indication: Product used for unknown indication
     Dosage: UNK UNK, DAILY
     Dates: start: 20250730, end: 20251002
  100. GAVIR [Concomitant]
     Indication: Product used for unknown indication
     Dosage: 500 MG, DAILY
     Dates: start: 20250730, end: 20251002
  101. BSS [Concomitant]
     Active Substance: CALCIUM CHLORIDE\MAGNESIUM CHLORIDE\POTASSIUM CHLORIDE\SODIUM ACETATE\SODIUM CHLORIDE\SODIUM CITRATE
     Indication: Product used for unknown indication
     Dosage: UNK UNK, DAILY
     Dates: start: 20250730, end: 20251002
  102. ALBUMIN HUMAN [Concomitant]
     Active Substance: ALBUMIN HUMAN
     Indication: Product used for unknown indication
     Dosage: UNK UNK, DAILY
     Dates: start: 20250801, end: 20250801
  103. ALBUMIN HUMAN [Concomitant]
     Active Substance: ALBUMIN HUMAN
     Dosage: UNK UNK, DAILY
     Dates: start: 20250901, end: 20250912
  104. HEPA MERZ [ORNITHINE ASPARTATE] [Concomitant]
     Indication: Product used for unknown indication
     Dosage: UNK UNK, QID
     Dates: start: 20250804, end: 20250929
  105. HEPA MERZ [ORNITHINE ASPARTATE] [Concomitant]
     Dosage: UNK UNK, BID
     Dates: start: 20250919, end: 20250923
  106. TAPOCIN [Concomitant]
     Indication: Product used for unknown indication
     Dosage: 400 MG, BID
     Dates: start: 20250919, end: 20250919
  107. TAPOCIN [Concomitant]
     Dosage: 400 MG, DAILY
     Dates: start: 20250920, end: 20250929
  108. ZYVOX [Concomitant]
     Active Substance: LINEZOLID
     Indication: Product used for unknown indication
     Dosage: UNK UNK, BID (2MG/ML)
     Dates: start: 20250909, end: 20250912
  109. LASIX [Concomitant]
     Active Substance: FUROSEMIDE
     Indication: Product used for unknown indication
     Dosage: UNK UNK, DAILY
     Dates: start: 20250908, end: 20250916
  110. PENIRAMIN [Concomitant]
     Indication: Product used for unknown indication
     Dosage: UNK UNK, DAILY
     Dates: start: 20250824, end: 20250919
  111. LEVOFLOXACIN [Concomitant]
     Active Substance: LEVOFLOXACIN
     Indication: Product used for unknown indication
     Dosage: UNK UNK, DAILY
     Dates: start: 20250819, end: 20250912
  112. CASFUNG [Concomitant]
     Indication: Product used for unknown indication
     Dosage: 70 MG, DAILY
     Dates: start: 20250822, end: 20250822
  113. CASFUNG [Concomitant]
     Dosage: 50 MG, DAILY
     Dates: start: 20250823, end: 20250911
  114. PHOSTEN [Concomitant]
     Indication: Product used for unknown indication
     Dosage: UNK UNK, DAILY
     Dates: start: 20250901, end: 20250908
  115. OMAPPLUSONE PERI [Concomitant]
     Indication: Product used for unknown indication
     Dosage: UNK UNK, DAILY
     Dates: start: 20250901, end: 20250912
  116. OLIMEL E [Concomitant]
     Active Substance: AMINO ACIDS\DEXTROSE\ELECTROLYTES NOS\SOYBEAN OIL
     Indication: Product used for unknown indication
     Dosage: UNK UNK, DAILY
     Dates: start: 20250915, end: 20251001

REACTIONS (4)
  - Cognitive disorder [Unknown]
  - Disorientation [Unknown]
  - Pneumonia [Not Recovered/Not Resolved]
  - Decubitus ulcer [Recovered/Resolved]
